FAERS Safety Report 7478397-8 (Version None)
Quarter: 2011Q2

REPORT INFORMATION
  Report Type: 
  Country: None (occurrence: None)
  Receive Date: 20110513
  Receipt Date: 20100728
  Transmission Date: 20111010
  Serious: Yes (Other)
  Sender: FDA-Public Use
  Company Number: US-PFIZER INC-2010095561

PATIENT
  Age: 38 Year
  Sex: Male
  Weight: 95.238 kg

DRUGS (1)
  1. CELEBREX [Suspect]
     Dosage: UNK
     Dates: start: 20090101

REACTIONS (1)
  - MYOCARDIAL INFARCTION [None]
